FAERS Safety Report 12226472 (Version 1)
Quarter: 2016Q1

REPORT INFORMATION
  Report Type: Spontaneous
  Country: KR (occurrence: KR)
  Receive Date: 20160331
  Receipt Date: 20160331
  Transmission Date: 20160526
  Serious: Yes (Hospitalization, Other)
  Sender: FDA-Public Use
  Company Number: PHHY2016KR040676

PATIENT
  Age: 21 Year
  Sex: Female

DRUGS (4)
  1. BLONANSERIN [Suspect]
     Active Substance: BLONANSERIN
     Indication: SCHIZOPHRENIA
     Dosage: 4 MG, QD
     Route: 065
  2. METHYLPHENIDATE. [Suspect]
     Active Substance: METHYLPHENIDATE
     Indication: ATTENTION DEFICIT/HYPERACTIVITY DISORDER
     Dosage: 10 MG, UNK
     Route: 065
     Dates: start: 20130910, end: 20131029
  3. METHYLPHENIDATE. [Suspect]
     Active Substance: METHYLPHENIDATE
     Dosage: 20 MG, UNK
     Route: 065
     Dates: start: 20131029
  4. HALOPERIDOL. [Suspect]
     Active Substance: HALOPERIDOL
     Indication: SCHIZOPHRENIA
     Dosage: 2.5 MG, ONCE/SINGLE
     Route: 030

REACTIONS (12)
  - Bradykinesia [Recovering/Resolving]
  - Hallucination, auditory [Recovering/Resolving]
  - Parkinsonism [Recovering/Resolving]
  - Excessive eye blinking [Recovering/Resolving]
  - Dyskinesia [Recovering/Resolving]
  - Schizophrenia [Recovering/Resolving]
  - Abnormal behaviour [Recovering/Resolving]
  - Catatonia [Recovering/Resolving]
  - Persecutory delusion [Recovering/Resolving]
  - Muscle rigidity [Recovering/Resolving]
  - Tremor [Recovering/Resolving]
  - Grimacing [Recovering/Resolving]
